FAERS Safety Report 8764844 (Version 1)
Quarter: 2012Q4

REPORT INFORMATION
  Report Type: 
  Country: KR (occurrence: KR)
  Receive Date: 20120831
  Receipt Date: 20120831
  Transmission Date: 20130627
  Serious: Yes (Hospitalization, Disabling)
  Sender: FDA-Public Use
  Company Number: KR-ELI_LILLY_AND_COMPANY-KR200602000328

PATIENT
  Age: 47 Year
  Sex: Female

DRUGS (13)
  1. GEMCITABINE HYDROCHLORIDE [Suspect]
     Dosage: 1250 mg/m2, cycle 1; day 1 and day 8
     Route: 042
     Dates: start: 20060109, end: 20060116
  2. CISPLATIN [Concomitant]
     Dosage: UNK UNK, unknown
     Route: 042
  3. DEXAMETHASON [Concomitant]
     Dosage: 10 mg, UNK
     Route: 042
     Dates: start: 20060106
  4. DEXAMETHASON [Concomitant]
     Dosage: 4 mg, qd
     Route: 048
     Dates: start: 20060116
  5. KYTRIL [Concomitant]
     Indication: NAUSEA
     Dosage: 1 mg, UNK
     Route: 042
     Dates: start: 20060109
  6. KYTRIL [Concomitant]
     Dosage: 1 mg, qd
     Route: 048
     Dates: start: 20060109
  7. POTASSIUM CHLORIDE [Concomitant]
     Dosage: 20 mEq, UNK
     Route: 042
     Dates: start: 20060109
  8. MANNITOL [Concomitant]
     Dosage: 100 ml, UNK
     Route: 042
     Dates: start: 20060109
  9. VITA C [Concomitant]
     Dosage: 1 g, qd
     Route: 048
     Dates: start: 20060101, end: 20060201
  10. FEROBA [Concomitant]
     Indication: ANAEMIA
     Dosage: UNK, bid
     Route: 048
  11. MEGA [Concomitant]
     Dosage: 1 g, tid
     Route: 048
     Dates: start: 20060102, end: 20060201
  12. MEGACE [Concomitant]
     Dosage: 20 mg, qd
     Dates: start: 20060109, end: 20060115
  13. ALLEGRA [Concomitant]
     Indication: HYPERSENSITIVITY
     Dosage: 180 mg, qd
     Route: 048
     Dates: start: 20060116, end: 20060122

REACTIONS (1)
  - Peripheral embolism [Recovered/Resolved with Sequelae]
